FAERS Safety Report 8008177-6 (Version None)
Quarter: 2011Q4

REPORT INFORMATION
  Report Type: 
  Country: None (occurrence: None)
  Receive Date: 20111222
  Receipt Date: 20111222
  Transmission Date: 20120403
  Serious: Yes (Other)
  Sender: FDA-Public Use
  Company Number: None

PATIENT
  Sex: Male
  Weight: 74.8435 kg

DRUGS (1)
  1. METOPROLOL TARTRATE [Suspect]
     Indication: TACHYCARDIA
     Dosage: 25MG ONCE A DAY ORAL
     Route: 048
     Dates: start: 20111121, end: 20111212

REACTIONS (3)
  - PRODUCT QUALITY ISSUE [None]
  - EXTRASYSTOLES [None]
  - VENTRICULAR EXTRASYSTOLES [None]
